FAERS Safety Report 10514113 (Version 1)
Quarter: 2014Q4

REPORT INFORMATION
  Report Type: Spontaneous
  Country: US (occurrence: US)
  Receive Date: 20141013
  Receipt Date: 20141013
  Transmission Date: 20150528
  Serious: Yes (Other)
  Sender: FDA-Public Use
  Company Number: US-ACTAVIS-2014-21677

PATIENT

DRUGS (1)
  1. DEXTROAMPHETAMINE-AMPHETAMINE (AELLC) [Suspect]
     Active Substance: DEXTROAMPHETAMINE
     Indication: PRODUCT USED FOR UNKNOWN INDICATION
     Dosage: 5 MG, DAILY
     Route: 048

REACTIONS (5)
  - Motor dysfunction [Unknown]
  - Sedation [Unknown]
  - Balance disorder [Unknown]
  - Fatigue [Unknown]
  - Narcolepsy [Unknown]
